FAERS Safety Report 13465535 (Version 1)
Quarter: 2017Q2

REPORT INFORMATION
  Report Type: Spontaneous
  Country: US (occurrence: US)
  Receive Date: 20170420
  Receipt Date: 20170420
  Transmission Date: 20170830
  Serious: Yes (Death)
  Sender: FDA-Public Use
  Company Number: None

PATIENT
  Sex: Male
  Weight: 101.61 kg

DRUGS (9)
  1. BUMETADINE [Concomitant]
     Active Substance: BUMETANIDE
  2. AMIODARONE [Concomitant]
     Active Substance: AMIODARONE
  3. SPIRONOLACTONE. [Suspect]
     Active Substance: SPIRONOLACTONE
  4. ASPIRIN. [Concomitant]
     Active Substance: ASPIRIN
  5. LISINOPRIL. [Concomitant]
     Active Substance: LISINOPRIL
  6. ZEPATIER [Suspect]
     Active Substance: ELBASVIR\GRAZOPREVIR
     Indication: HEPATITIS C
     Route: 048
     Dates: start: 20160727, end: 20160904
  7. CARVEDILOL. [Concomitant]
     Active Substance: CARVEDILOL
  8. FUROSEMIDE. [Concomitant]
     Active Substance: FUROSEMIDE
  9. PLAVIX [Concomitant]
     Active Substance: CLOPIDOGREL BISULFATE

REACTIONS (2)
  - Cardio-respiratory arrest [None]
  - Pulse absent [None]

NARRATIVE: CASE EVENT DATE: 20160904
